FAERS Safety Report 6604965-9 (Version None)
Quarter: 2010Q1

REPORT INFORMATION
  Report Type: 
  Country: None (occurrence: None)
  Receive Date: 20100226
  Receipt Date: 20100218
  Transmission Date: 20100710
  Serious: Yes (Other)
  Sender: FDA-Public Use
  Company Number: US-PFIZER INC-2010022963

PATIENT
  Sex: Female

DRUGS (4)
  1. LIPITOR [Suspect]
     Indication: BLOOD CHOLESTEROL INCREASED
     Dosage: 20 MG, 1X/DAY
     Route: 048
     Dates: start: 20020701
  2. LOTREL [Concomitant]
     Dosage: UNK
  3. PLAVIX [Concomitant]
     Dosage: 75 MG, UNK
  4. ACETYLSALICYLIC ACID [Concomitant]
     Dosage: 81 MG, UNK

REACTIONS (3)
  - CEREBROVASCULAR ACCIDENT [None]
  - PRURITUS [None]
  - TYPE 2 DIABETES MELLITUS [None]
